FAERS Safety Report 24778550 (Version 2)
Quarter: 2025Q1

REPORT INFORMATION
  Report Type: Spontaneous
  Country: US (occurrence: US)
  Receive Date: 20241226
  Receipt Date: 20250307
  Transmission Date: 20250408
  Serious: Yes (Other)
  Sender: BAYER HEALTHCARE LLC
  Company Number: US-BAYER-2024A181848

PATIENT
  Age: 84 Year
  Sex: Female

DRUGS (3)
  1. ASPIRIN [Suspect]
     Active Substance: ASPIRIN
     Dates: start: 2009, end: 2011
  2. PLAVIX [Suspect]
     Active Substance: CLOPIDOGREL BISULFATE
  3. DONEPEZIL [Suspect]
     Active Substance: DONEPEZIL

REACTIONS (1)
  - Cerebral haemorrhage [Recovering/Resolving]

NARRATIVE: CASE EVENT DATE: 20110101
